FAERS Safety Report 19641300 (Version 2)
Quarter: 2021Q3

REPORT INFORMATION
  Report Type: Other
  Country: US (occurrence: US)
  Receive Date: 20210730
  Receipt Date: 20210910
  Transmission Date: 20211014
  Serious: Yes (Other)
  Sender: FDA-Public Use
  Company Number: US-ROCHE-2880898

PATIENT
  Age: 33 Year

DRUGS (1)
  1. OCRELIZUMAB. [Suspect]
     Active Substance: OCRELIZUMAB
     Indication: MULTIPLE SCLEROSIS
     Dosage: INITIAL DOSE: 300 MG INTRAVENOUS INFUSION, FOLLOWED TWO WEEKS LATER BY A SECOND 300 MG INTRAVENOUS I
     Route: 042

REACTIONS (4)
  - Urticaria [Recovering/Resolving]
  - Nephrolithiasis [Recovered/Resolved]
  - Infection [Unknown]
  - Vomiting [Recovered/Resolved]

NARRATIVE: CASE EVENT DATE: 20210507
